FAERS Safety Report 16719368 (Version 2)
Quarter: 2019Q3

REPORT INFORMATION
  Report Type: Spontaneous
  Country: BE (occurrence: BE)
  Receive Date: 20190820
  Receipt Date: 20190907
  Transmission Date: 20191005
  Serious: Yes (Life-Threatening, Hospitalization, Other)
  Sender: FDA-Public Use
  Company Number: BE-AUROBINDO-AUR-APL-2012-03062

PATIENT

DRUGS (8)
  1. SODIUM PICOSULFATE [Concomitant]
     Active Substance: SODIUM PICOSULFATE
     Indication: CONSTIPATION
     Dosage: UNK(DROPS)
     Route: 065
  2. PANTOPRAZOLE [Concomitant]
     Active Substance: PANTOPRAZOLE
     Indication: CONSTIPATION
     Dosage: 20 MILLIGRAM
     Route: 065
  3. LEVOTHYROXINE. [Concomitant]
     Active Substance: LEVOTHYROXINE
     Indication: HYPERTHYROIDISM
  4. VENLAFAXINE [Interacting]
     Active Substance: VENLAFAXINE HYDROCHLORIDE
     Indication: DEPRESSION
     Dosage: 150 MILLIGRAM
     Route: 065
  5. LEVOTHYROXINE. [Concomitant]
     Active Substance: LEVOTHYROXINE
     Indication: THYROIDECTOMY
     Dosage: 125 MICROGRAM
     Route: 065
  6. BISOPROLOL [Concomitant]
     Active Substance: BISOPROLOL
     Indication: DEPRESSION
     Dosage: 2.5 MILLIGRAM, UNK
     Route: 065
  7. CALCIUM + VITAMIN D3 [Concomitant]
     Active Substance: CALCIUM\CHOLECALCIFEROL
     Indication: PRODUCT USED FOR UNKNOWN INDICATION
     Dosage: 20 MILLIGRAM, UNK
     Route: 065
  8. MIRTAZAPINE ORODISPERSABLE TABLET [Suspect]
     Active Substance: MIRTAZAPINE
     Indication: DEPRESSION
     Dosage: 30 MILLIGRAM
     Route: 065

REACTIONS (28)
  - Tachycardia [Recovered/Resolved]
  - Reflexes abnormal [Recovered/Resolved]
  - Serotonin syndrome [Recovered/Resolved]
  - Hyperreflexia [Recovered/Resolved]
  - Dehydration [Recovered/Resolved]
  - Amnesia [Recovered/Resolved]
  - Depressed level of consciousness [Recovered/Resolved]
  - Loss of consciousness [Recovered/Resolved]
  - Confusional state [Recovered/Resolved]
  - Akathisia [Recovered/Resolved]
  - Hypertension [Recovered/Resolved]
  - Blood creatine phosphokinase increased [Recovered/Resolved]
  - Urinary tract infection [Recovered/Resolved]
  - Epilepsy [Recovered/Resolved]
  - Unresponsive to stimuli [Recovered/Resolved]
  - Breath sounds [Recovered/Resolved]
  - Pyuria [Recovered/Resolved]
  - Drug interaction [Recovered/Resolved]
  - Metabolic encephalopathy [Recovered/Resolved]
  - Inflammation [Recovered/Resolved]
  - Blood lactic acid decreased [Recovered/Resolved]
  - Eye movement disorder [Recovered/Resolved]
  - Hypertonia [Recovered/Resolved]
  - Extensor plantar response [Recovered/Resolved]
  - Sedation [Recovered/Resolved]
  - Mydriasis [Recovered/Resolved]
  - Myoclonus [Recovered/Resolved]
  - Hyperhidrosis [Recovered/Resolved]
